FAERS Safety Report 17068726 (Version 1)
Quarter: 2019Q4

REPORT INFORMATION
  Report Type: Spontaneous
  Country: US (occurrence: US)
  Receive Date: 20191123
  Receipt Date: 20191123
  Transmission Date: 20200122
  Serious: Yes (Life-Threatening)
  Sender: FDA-Public Use
  Company Number: US-TEVA-2019-US-1141931

PATIENT
  Sex: Male

DRUGS (2)
  1. AMIODARONE HYDROCHLORIDE TEVA [Suspect]
     Active Substance: AMIODARONE HYDROCHLORIDE
     Indication: ATRIAL FIBRILLATION
     Route: 048
  2. AMIODARONE HYDROCHLORIDE. [Suspect]
     Active Substance: AMIODARONE HYDROCHLORIDE
     Indication: ATRIAL FIBRILLATION
     Route: 048

REACTIONS (20)
  - Hypothyroidism [Unknown]
  - Chest pain [Unknown]
  - Weight decreased [Unknown]
  - Anaemia [Unknown]
  - Blindness [Unknown]
  - Impaired quality of life [Unknown]
  - Liver function test abnormal [Unknown]
  - Renal injury [Unknown]
  - Asthenia [Unknown]
  - Cough [Unknown]
  - Rash [Unknown]
  - Restlessness [Unknown]
  - Macular degeneration [Unknown]
  - Oedema [Unknown]
  - Insomnia [Unknown]
  - Fatigue [Unknown]
  - Off label use [Unknown]
  - Dyspnoea [Unknown]
  - Irritability [Unknown]
  - Pulmonary hypertension [Unknown]

NARRATIVE: CASE EVENT DATE: 201606
